FAERS Safety Report 8310261-4 (Version None)
Quarter: 2012Q2

REPORT INFORMATION
  Report Type: 
  Country: None (occurrence: None)
  Receive Date: 20120425
  Receipt Date: 20120418
  Transmission Date: 20120825
  Serious: Yes (Hospitalization)
  Sender: FDA-Public Use
  Company Number: IT-SANOFI-AVENTIS-2012SA027047

PATIENT
  Age: 91 Year
  Sex: Female

DRUGS (8)
  1. OMEPRAZOLE [Concomitant]
     Route: 048
     Dates: start: 20120404
  2. LASIX [Suspect]
     Dosage: STRENGTH: 500 MG
     Route: 048
     Dates: start: 20050101, end: 20120406
  3. LASIX [Suspect]
     Dosage: STRENGTH: 25 MG DOSE:2 UNIT(S)
     Route: 048
     Dates: start: 20050101, end: 20120406
  4. ALLOPURINOL [Concomitant]
     Dosage: STRENGTH: 300 MG DOSE:1 UNIT(S)
     Route: 048
  5. CITALOPRAM-RATIOPHARM [Concomitant]
     Dosage: STRENGTH: 20 MG DOSE:1 UNIT(S)
     Route: 048
  6. COUMADIN [Suspect]
     Indication: ATRIAL FIBRILLATION
     Dosage: STRENGTH: 5 MG DOSE:1 UNIT(S)
     Route: 048
     Dates: start: 20100101, end: 20120406
  7. ENALAPRIL MALEATE [Suspect]
     Dosage: STRENGTH: 5 MG DOSE:2 UNIT(S)
     Route: 048
     Dates: start: 20110101, end: 20120406
  8. METOCLOPRAMIDE HYDROCHLORIDE [Concomitant]
     Dosage: STRENGTH: 10 MG DOSE:2 UNIT(S)
     Route: 048
     Dates: start: 20120404

REACTIONS (3)
  - COAGULOPATHY [None]
  - RENAL FAILURE ACUTE [None]
  - HYPERKALAEMIA [None]
